FAERS Safety Report 10045629 (Version 1)
Quarter: 2014Q1

REPORT INFORMATION
  Report Type: Spontaneous
  Country: FR (occurrence: FR)
  Receive Date: 20140328
  Receipt Date: 20140328
  Transmission Date: 20141002
  Serious: Yes (Hospitalization)
  Sender: FDA-Public Use
  Company Number: FR-ASTRAZENECA-2014SE20851

PATIENT
  Age: 19185 Day
  Sex: Male

DRUGS (2)
  1. XEROQUEL [Suspect]
     Indication: BIPOLAR I DISORDER
     Dosage: DOSE PROGRESSIVELY INCREASED FROM 50 MG TO 300 MG
     Route: 048
     Dates: start: 20140207, end: 20140213
  2. TERALITHE [Concomitant]
     Dosage: 250 MG, ONE TABLET EVERY MORNING AND AT MIDDAY AND TWO TABLETS EVERY EVENING
     Route: 048

REACTIONS (3)
  - Rash generalised [Recovering/Resolving]
  - Rash maculo-papular [Recovering/Resolving]
  - Rash pruritic [Recovering/Resolving]
